FAERS Safety Report 7202575 (Version 3)
Quarter: 2013Q2

REPORT INFORMATION
  Report Type: Spontaneous
  Country: US (occurrence: US)
  Receive Date: 20091207
  Receipt Date: 20130629
  Transmission Date: 20140414
  Serious: No
  Sender: FDA-Public Use
  Company Number: US-B.I. PHARMACEUTICALS,INC./RIDGEFIELD-2009-BP-13815BP

PATIENT
  Sex: Male

DRUGS (8)
  1. ZANTAC 150 (RANITIDINE HYDROCHLORIDE) [Suspect]
     Indication: DYSPEPSIA
     Dosage: 300 MG
     Route: 048
     Dates: start: 2010
  2. ZANTAC 150 (RANITIDINE HYDROCHLORIDE) [Suspect]
     Indication: DYSPEPSIA
  3. PLAVIX [Concomitant]
  4. ZOCOR [Concomitant]
  5. NORVASC [Concomitant]
  6. EYE VITAMIN [Concomitant]
  7. AREDS [Concomitant]
  8. QVAR [Concomitant]
     Indication: PROPHYLAXIS

REACTIONS (4)
  - Depression [Not Recovered/Not Resolved]
  - Flatulence [Not Recovered/Not Resolved]
  - Abdominal pain upper [Unknown]
  - Incorrect drug administration duration [Not Recovered/Not Resolved]
